FAERS Safety Report 4902705-2 (Version None)
Quarter: 2006Q1

REPORT INFORMATION
  Report Type: 
  Country: None (occurrence: None)
  Receive Date: 20060207
  Receipt Date: 20060123
  Transmission Date: 20060701
  Serious: Yes (Hospitalization)
  Sender: FDA-Public Use
  Company Number: JP-ROCHE-433556

PATIENT
  Age: 34 Year
  Sex: Male
  Weight: 76 kg

DRUGS (10)
  1. MYCOPHENOLATE MOFETIL [Suspect]
     Route: 048
     Dates: start: 20040601, end: 20050314
  2. PREDONINE [Suspect]
     Route: 048
     Dates: start: 20041130
  3. NEORAL [Suspect]
     Route: 048
     Dates: start: 20041130
  4. SPANIDIN [Suspect]
     Route: 041
     Dates: start: 20050306, end: 20050312
  5. SOLU-MEDROL [Concomitant]
     Route: 042
     Dates: start: 20050302, end: 20050304
  6. NORVASC [Concomitant]
     Route: 048
  7. ARTIST [Concomitant]
     Route: 048
  8. ULGUT [Concomitant]
     Route: 048
  9. TERAZOSIN HYDROCHLORIDE [Concomitant]
     Route: 048
  10. ISODINE [Concomitant]
     Dosage: DOSE FORM REPORTED AS GARGLE. THE DOSE WAS ADJUSTED (NO FURHTER INFORMATION).
     Route: 002

REACTIONS (7)
  - KIDNEY TRANSPLANT REJECTION [None]
  - NEPHRITIS [None]
  - PHARYNGOLARYNGEAL PAIN [None]
  - PNEUMONIA [None]
  - PYREXIA [None]
  - RESPIRATORY FAILURE [None]
  - VASCULITIS [None]
